FAERS Safety Report 5014860-7 (Version None)
Quarter: 2006Q2

REPORT INFORMATION
  Report Type: 
  Country: None (occurrence: None)
  Receive Date: 20060414
  Receipt Date: 20060120
  Transmission Date: 20061013
  Serious: No
  Sender: FDA-Public Use
  Company Number: 2006SP000375

PATIENT
  Age: 67 Year
  Sex: Male
  Weight: 86.1834 kg

DRUGS (8)
  1. LUNESTA [Suspect]
     Indication: INSOMNIA
     Dosage: 3 MG;HS;ORAL
     Route: 048
     Dates: start: 20060101
  2. ATORVASTATIN CALCIUM [Concomitant]
  3. SYNTHROID [Concomitant]
  4. EFFEXOR [Concomitant]
  5. NIASPAN [Concomitant]
  6. TAMSULOSIN HCL [Concomitant]
  7. HYDROCHLORIDE [Concomitant]
  8. ALPRAZOLAM [Concomitant]

REACTIONS (1)
  - DYSGEUSIA [None]
